FAERS Safety Report 23261328 (Version 5)
Quarter: 2025Q1

REPORT INFORMATION
  Report Type: Spontaneous
  Country: FR (occurrence: FR)
  Receive Date: 20231205
  Receipt Date: 20250109
  Transmission Date: 20250409
  Serious: Yes (Death, Life-Threatening, Other)
  Sender: ALEXION PHARMACEUTICALS
  Company Number: None

PATIENT
  Age: 62 Year

DRUGS (83)
  1. TICAGRELOR [Interacting]
     Active Substance: TICAGRELOR
     Indication: Infarction
  2. TICAGRELOR [Interacting]
     Active Substance: TICAGRELOR
     Route: 048
  3. TICAGRELOR [Interacting]
     Active Substance: TICAGRELOR
  4. TICAGRELOR [Interacting]
     Active Substance: TICAGRELOR
     Route: 048
  5. ARIXTRA [Interacting]
     Active Substance: FONDAPARINUX SODIUM
     Indication: Infarction
     Route: 058
  6. ARIXTRA [Interacting]
     Active Substance: FONDAPARINUX SODIUM
     Indication: Infarction
  7. HEPARIN SODIUM [Interacting]
     Active Substance: HEPARIN SODIUM
     Indication: Infarction
     Route: 042
  8. HEPARIN SODIUM [Interacting]
     Active Substance: HEPARIN SODIUM
  9. DICLOFENAC SODIUM [Interacting]
     Active Substance: DICLOFENAC SODIUM
     Indication: Back pain
     Dosage: 50 MG, QD
     Route: 048
  10. DICLOFENAC SODIUM [Interacting]
     Active Substance: DICLOFENAC SODIUM
     Dosage: 50 MG, QD
  11. KARDEGIC [Interacting]
     Active Substance: ASPIRIN DL-LYSINE
     Indication: Cardiovascular event prophylaxis
     Dosage: 1 DOSAGE FORM, QD (POUDRE POUR SOLUTION BUVABLE EN SACHET DOSE)
     Route: 048
  12. KARDEGIC [Interacting]
     Active Substance: ASPIRIN DL-LYSINE
     Dosage: 1 DOSAGE FORM, QD (POUDRE POUR SOLUTION BUVABLE EN SACHET DOSE)
  13. METHYLPREDNISOLONE [Interacting]
     Active Substance: METHYLPREDNISOLONE
     Indication: Back pain
     Dosage: 48 MG, QD
  14. METHYLPREDNISOLONE [Interacting]
     Active Substance: METHYLPREDNISOLONE
     Dosage: 48 MG, QD
     Route: 048
  15. METHYLPREDNISOLONE [Interacting]
     Active Substance: METHYLPREDNISOLONE
     Dosage: 32 MG, QD
  16. METHYLPREDNISOLONE [Interacting]
     Active Substance: METHYLPREDNISOLONE
     Dosage: 32 MG, QD
     Route: 048
  17. METHYLPREDNISOLONE [Interacting]
     Active Substance: METHYLPREDNISOLONE
     Dosage: 16 MG, QD
  18. METHYLPREDNISOLONE [Interacting]
     Active Substance: METHYLPREDNISOLONE
     Dosage: 16 MG, QD
     Route: 048
  19. NAPROXEN [Interacting]
     Active Substance: NAPROXEN
     Indication: Back pain
     Dosage: 550 MG, QD(IN THE EVENING)
     Route: 048
  20. NAPROXEN [Interacting]
     Active Substance: NAPROXEN
     Dosage: 550 MG, QD(IN THE EVENING)
  21. MEDROL [Interacting]
     Active Substance: METHYLPREDNISOLONE
     Indication: Back pain
  22. MEDROL [Interacting]
     Active Substance: METHYLPREDNISOLONE
     Indication: Back pain
     Route: 048
  23. MEDROL [Interacting]
     Active Substance: METHYLPREDNISOLONE
  24. MEDROL [Interacting]
     Active Substance: METHYLPREDNISOLONE
     Route: 048
  25. MEDROL [Interacting]
     Active Substance: METHYLPREDNISOLONE
  26. MEDROL [Interacting]
     Active Substance: METHYLPREDNISOLONE
     Route: 048
  27. MEDROL [Interacting]
     Active Substance: METHYLPREDNISOLONE
     Dosage: 48 MG, QD
     Route: 048
  28. MEDROL [Interacting]
     Active Substance: METHYLPREDNISOLONE
     Dosage: 48 MG, QD
  29. MEDROL [Interacting]
     Active Substance: METHYLPREDNISOLONE
     Dosage: 32 MG, QD
  30. MEDROL [Interacting]
     Active Substance: METHYLPREDNISOLONE
     Dosage: 32 MG, QD
     Route: 048
  31. MEDROL [Interacting]
     Active Substance: METHYLPREDNISOLONE
     Dosage: 16 MG, QD
  32. MEDROL [Interacting]
     Active Substance: METHYLPREDNISOLONE
     Dosage: 16 MG, QD
     Route: 048
  33. CANDESARTAN CILEXETIL [Concomitant]
     Active Substance: CANDESARTAN CILEXETIL
     Indication: Product used for unknown indication
     Dosage: 32 MG, QD
  34. CANDESARTAN CILEXETIL [Concomitant]
     Active Substance: CANDESARTAN CILEXETIL
     Indication: Product used for unknown indication
     Dosage: 32 MG, QD
     Route: 048
  35. CANDESARTAN CILEXETIL [Concomitant]
     Active Substance: CANDESARTAN CILEXETIL
     Dosage: 32 MG, QD, 16MG IN THE EVENING
  36. CANDESARTAN CILEXETIL [Concomitant]
     Active Substance: CANDESARTAN CILEXETIL
     Dosage: 32 MG, QD, 16MG IN THE EVENING
     Route: 048
  37. DAPAGLIFLOZIN [Concomitant]
     Active Substance: DAPAGLIFLOZIN
     Indication: Product used for unknown indication
     Dosage: 10 MG, QD (COMPRIME PELLICULE)
  38. DAPAGLIFLOZIN [Concomitant]
     Active Substance: DAPAGLIFLOZIN
     Indication: Product used for unknown indication
     Dosage: 10 MG, QD (COMPRIME PELLICULE)
     Route: 048
  39. DAPAGLIFLOZIN [Concomitant]
     Active Substance: DAPAGLIFLOZIN
     Dosage: 10 MG, QD
  40. DAPAGLIFLOZIN [Concomitant]
     Active Substance: DAPAGLIFLOZIN
     Dosage: 10 MG, QD
     Route: 048
  41. METFORMIN HYDROCHLORIDE\SAXAGLIPTIN [Concomitant]
     Active Substance: METFORMIN HYDROCHLORIDE\SAXAGLIPTIN
     Indication: Product used for unknown indication
     Dosage: 2 DOSAGE FORM, QD (COMPRIME PELLICULE)
  42. METFORMIN HYDROCHLORIDE\SAXAGLIPTIN [Concomitant]
     Active Substance: METFORMIN HYDROCHLORIDE\SAXAGLIPTIN
     Indication: Product used for unknown indication
     Dosage: 2 DOSAGE FORM, QD (COMPRIME PELLICULE)
     Route: 048
  43. METFORMIN HYDROCHLORIDE\SAXAGLIPTIN [Concomitant]
     Active Substance: METFORMIN HYDROCHLORIDE\SAXAGLIPTIN
     Dosage: 2 DF, QD
  44. METFORMIN HYDROCHLORIDE\SAXAGLIPTIN [Concomitant]
     Active Substance: METFORMIN HYDROCHLORIDE\SAXAGLIPTIN
     Dosage: 2 DF, QD
     Route: 048
  45. NITRENDIPINE [Concomitant]
     Active Substance: NITRENDIPINE
     Indication: Product used for unknown indication
     Dosage: 20 MG, QD
  46. NITRENDIPINE [Concomitant]
     Active Substance: NITRENDIPINE
     Indication: Product used for unknown indication
     Dosage: 20 MG, QD
     Route: 048
  47. NITRENDIPINE [Concomitant]
     Active Substance: NITRENDIPINE
     Dosage: 20 MG, QD, IN THE MORNING
  48. NITRENDIPINE [Concomitant]
     Active Substance: NITRENDIPINE
     Dosage: 20 MG, QD, IN THE MORNING
     Route: 048
  49. HYDROCHLOROTHIAZIDE [Concomitant]
     Active Substance: HYDROCHLOROTHIAZIDE
     Indication: Product used for unknown indication
     Dosage: 12.5 MG, QD
  50. HYDROCHLOROTHIAZIDE [Concomitant]
     Active Substance: HYDROCHLOROTHIAZIDE
     Indication: Product used for unknown indication
     Dosage: 12.5 MG, QD
     Route: 048
  51. HYDROCHLOROTHIAZIDE [Concomitant]
     Active Substance: HYDROCHLOROTHIAZIDE
     Dosage: 12.5 MG, QD
  52. HYDROCHLOROTHIAZIDE [Concomitant]
     Active Substance: HYDROCHLOROTHIAZIDE
     Dosage: 12.5 MG, QD
     Route: 048
  53. REPAGLINIDE [Concomitant]
     Active Substance: REPAGLINIDE
     Indication: Product used for unknown indication
     Route: 065
  54. REPAGLINIDE [Concomitant]
     Active Substance: REPAGLINIDE
     Route: 065
  55. REPAGLINIDE [Concomitant]
     Active Substance: REPAGLINIDE
  56. REPAGLINIDE [Concomitant]
     Active Substance: REPAGLINIDE
  57. REPAGLINIDE [Concomitant]
     Active Substance: REPAGLINIDE
  58. REPAGLINIDE [Concomitant]
     Active Substance: REPAGLINIDE
  59. REPAGLINIDE [Concomitant]
     Active Substance: REPAGLINIDE
  60. ACETAMINOPHEN\CAFFEINE [Concomitant]
     Active Substance: ACETAMINOPHEN\CAFFEINE
     Indication: Product used for unknown indication
  61. ACETAMINOPHEN\CAFFEINE [Concomitant]
     Active Substance: ACETAMINOPHEN\CAFFEINE
  62. ACETAMINOPHEN\CAFFEINE [Concomitant]
     Active Substance: ACETAMINOPHEN\CAFFEINE
  63. ACETAMINOPHEN\CAFFEINE [Concomitant]
     Active Substance: ACETAMINOPHEN\CAFFEINE
  64. ACETAMINOPHEN\CAFFEINE [Concomitant]
     Active Substance: ACETAMINOPHEN\CAFFEINE
  65. ACETAMINOPHEN\CAFFEINE [Concomitant]
     Active Substance: ACETAMINOPHEN\CAFFEINE
  66. ACETAMINOPHEN\CAFFEINE [Concomitant]
     Active Substance: ACETAMINOPHEN\CAFFEINE
     Route: 065
  67. ACETAMINOPHEN\CAFFEINE [Concomitant]
     Active Substance: ACETAMINOPHEN\CAFFEINE
     Route: 065
  68. DICLOFENAC [Interacting]
     Active Substance: DICLOFENAC
     Indication: Back pain
     Dosage: 50 MG, QD
     Route: 048
  69. DICLOFENAC [Interacting]
     Active Substance: DICLOFENAC
     Indication: Back pain
     Dosage: 50 MG, QD
  70. NAPROXEN [Interacting]
     Active Substance: NAPROXEN
     Indication: Back pain
  71. NAPROXEN [Interacting]
     Active Substance: NAPROXEN
     Indication: Back pain
     Route: 048
  72. NAPROXEN [Interacting]
     Active Substance: NAPROXEN
     Dosage: 550 MG, QD
  73. NAPROXEN [Interacting]
     Active Substance: NAPROXEN
     Dosage: 550 MG, QD
     Route: 048
  74. ROSUVASTATIN [Concomitant]
     Active Substance: ROSUVASTATIN
     Indication: Product used for unknown indication
  75. ROSUVASTATIN [Concomitant]
     Active Substance: ROSUVASTATIN
     Route: 048
  76. ROSUVASTATIN [Concomitant]
     Active Substance: ROSUVASTATIN
     Dosage: 10 MG, QD
  77. ROSUVASTATIN [Concomitant]
     Active Substance: ROSUVASTATIN
     Dosage: 10 MG, QD
     Route: 048
  78. TICAGRELOR [Interacting]
     Active Substance: TICAGRELOR
     Indication: Infarction
  79. TICAGRELOR [Interacting]
     Active Substance: TICAGRELOR
     Route: 048
  80. TICAGRELOR [Interacting]
     Active Substance: TICAGRELOR
  81. TICAGRELOR [Interacting]
     Active Substance: TICAGRELOR
     Route: 048
  82. HEPARIN SODIUM [Interacting]
     Active Substance: HEPARIN SODIUM
     Indication: Infarction
     Route: 042
  83. HEPARIN SODIUM [Interacting]
     Active Substance: HEPARIN SODIUM

REACTIONS (4)
  - Pulmonary embolism [Fatal]
  - Gastroduodenal ulcer [Fatal]
  - Shock haemorrhagic [Fatal]
  - Drug interaction [Fatal]
